FAERS Safety Report 17393296 (Version 2)
Quarter: 2020Q1

REPORT INFORMATION
  Report Type: Spontaneous
  Country: DE (occurrence: DE)
  Receive Date: 20200207
  Receipt Date: 20200217
  Transmission Date: 20200409
  Serious: Yes (Death, Other)
  Sender: FDA-Public Use
  Company Number: DE-AMGEN-DEUSP2020018768

PATIENT

DRUGS (5)
  1. SIROLIMUS. [Concomitant]
     Active Substance: SIROLIMUS
  2. CINACALCET HCL [Suspect]
     Active Substance: CINACALCET HYDROCHLORIDE
     Indication: HYPERPARATHYROIDISM
     Dosage: 30-90 MILLIGRAM, QD
     Route: 065
  3. MYCOPHENOLATE MOFETIL. [Concomitant]
     Active Substance: MYCOPHENOLATE MOFETIL
  4. CYCLOSPORINE. [Concomitant]
     Active Substance: CYCLOSPORINE
  5. TACROLIMUS. [Concomitant]
     Active Substance: TACROLIMUS

REACTIONS (16)
  - Transplant failure [Unknown]
  - Glomerular filtration rate decreased [Unknown]
  - Renal failure [Unknown]
  - Sepsis [Fatal]
  - Ileus [Fatal]
  - Death [Fatal]
  - Hypercalcaemia [Unknown]
  - Blood creatinine increased [Unknown]
  - Blood alkaline phosphatase increased [Unknown]
  - Coronary artery bypass [Unknown]
  - Blood parathyroid hormone increased [Unknown]
  - Myocardial infarction [Fatal]
  - Off label use [Unknown]
  - Nephrocalcinosis [Unknown]
  - Gastrointestinal disorder [Unknown]
  - Hypophosphataemia [Unknown]
